FAERS Safety Report 4313077-9 (Version None)
Quarter: 2004Q1

REPORT INFORMATION
  Report Type: 
  Country: None (occurrence: None)
  Receive Date: 20040304
  Receipt Date: 20040227
  Transmission Date: 20041129
  Serious: Yes (Hospitalization)
  Sender: FDA-Public Use
  Company Number: 2004201312US

PATIENT
  Age: 46 Year
  Sex: Female

DRUGS (6)
  1. BEXTRA [Suspect]
     Indication: POST PROCEDURAL PAIN
     Dosage: 10 MG, ^TWO TABLETS RIGHT AWAY^
     Dates: start: 20030501
  2. BEXTRA [Suspect]
     Indication: SWELLING
     Dosage: 10 MG, ^TWO TABLETS RIGHT AWAY^
     Dates: start: 20030501
  3. GLUCOPHAGE [Concomitant]
  4. STARLIX [Concomitant]
  5. ATENOLOL [Concomitant]
  6. ADVIL [Concomitant]

REACTIONS (5)
  - DRUG HYPERSENSITIVITY [None]
  - DYSPNOEA [None]
  - MASTECTOMY [None]
  - POSTOPERATIVE INFECTION [None]
  - URTICARIA [None]
